FAERS Safety Report 9242507 (Version 2)
Quarter: 2013Q2

REPORT INFORMATION
  Report Type: Report from Study
  Country: US (occurrence: US)
  Receive Date: 20130419
  Receipt Date: 20130423
  Transmission Date: 20140414
  Serious: Yes (Hospitalization)
  Sender: FDA-Public Use
  Company Number: US-ROCHE-1214196

PATIENT
  Age: 57 Year
  Sex: Female
  Weight: 72.64 kg

DRUGS (6)
  1. HERCEPTIN [Suspect]
     Indication: BREAST CANCER
     Dosage: DOSE:UNKNOWN
     Route: 042
     Dates: start: 20130321, end: 20130411
  2. HERCEPTIN [Suspect]
     Route: 042
     Dates: start: 20130328
  3. TAXOTERE [Concomitant]
     Indication: BREAST CANCER
     Dosage: DOSE:UNKNOWN
     Route: 042
     Dates: start: 20130321, end: 20130411
  4. TAXOTERE [Concomitant]
     Route: 042
     Dates: start: 20130328
  5. CARBOPLATIN [Concomitant]
     Indication: BREAST CANCER
     Dosage: DOSE:UNKNOWN
     Route: 042
     Dates: start: 20130321, end: 20130411
  6. CARBOPLATIN [Concomitant]
     Route: 042
     Dates: start: 20130328

REACTIONS (7)
  - Dehydration [Recovering/Resolving]
  - Gastrointestinal disorder [Recovering/Resolving]
  - Oxygen saturation decreased [Recovering/Resolving]
  - Diarrhoea [Recovered/Resolved]
  - Asthenia [Not Recovered/Not Resolved]
  - Myalgia [Not Recovered/Not Resolved]
  - Colitis [Not Recovered/Not Resolved]
